FAERS Safety Report 10083474 (Version 1)
Quarter: 2014Q2

REPORT INFORMATION
  Report Type: Spontaneous
  Country: US (occurrence: None)
  Receive Date: 20140416
  Receipt Date: 20140416
  Transmission Date: 20141212
  Serious: Yes (Hospitalization)
  Sender: FDA-Public Use
  Company Number: None

PATIENT
  Age: 63 Year
  Sex: Male
  Weight: 91 kg

DRUGS (2)
  1. RIBAVIRIN [Suspect]
     Indication: HEPATITIS C
     Route: 048
     Dates: start: 20140203
  2. SOFOSBUVIR [Suspect]
     Indication: HEPATITIS C
     Route: 048
     Dates: start: 20140203

REACTIONS (8)
  - Vomiting [None]
  - Nausea [None]
  - Confusional state [None]
  - Hepatic encephalopathy [None]
  - Pneumonia aspiration [None]
  - Pyrexia [None]
  - Tachycardia [None]
  - Peritonitis bacterial [None]
